FAERS Safety Report 11991925 (Version 1)
Quarter: 2016Q1

REPORT INFORMATION
  Report Type: Spontaneous
  Country: US (occurrence: US)
  Receive Date: 20160203
  Receipt Date: 20160203
  Transmission Date: 20160526
  Serious: No
  Sender: FDA-Public Use
  Company Number: US-JNJFOC-20151211302

PATIENT
  Age: 9 Month
  Sex: Male

DRUGS (2)
  1. CHILDRENS ZYRTEC [Suspect]
     Active Substance: CETIRIZINE HYDROCHLORIDE
     Indication: SINUS CONGESTION
     Dosage: RECEIVED 1.25MG AT 0730 ON 10DEC2015 AND RECEIVED THE SAME DOSE AGAIN ON 10DEC2015 AT ABOUT 2030.
     Route: 048
     Dates: start: 20151210
  2. CHILDRENS ZYRTEC [Suspect]
     Active Substance: CETIRIZINE HYDROCHLORIDE
     Indication: HYPERSENSITIVITY
     Dosage: RECEIVED 1.25MG AT 0730 ON 10DEC2015 AND RECEIVED THE SAME DOSE AGAIN ON 10DEC2015 AT ABOUT 2030.
     Route: 048
     Dates: start: 20151210

REACTIONS (2)
  - Product use issue [Unknown]
  - Off label use [Unknown]

NARRATIVE: CASE EVENT DATE: 20151210
